FAERS Safety Report 5961596-1 (Version None)
Quarter: 2008Q4

REPORT INFORMATION
  Report Type: 
  Country: None (occurrence: None)
  Receive Date: 20081119
  Receipt Date: 20080820
  Transmission Date: 20090506
  Serious: Yes (Hospitalization)
  Sender: FDA-Public Use
  Company Number: WAES 0808USA04047

PATIENT
  Age: 76 Year
  Sex: Male

DRUGS (1)
  1. JANUVIA [Suspect]
     Indication: DIABETES MELLITUS
     Dosage: 100 MG/DAILY/PO
     Route: 048

REACTIONS (3)
  - ADVERSE EVENT [None]
  - CREATININE RENAL CLEARANCE DECREASED [None]
  - INCORRECT DOSE ADMINISTERED [None]
